FAERS Safety Report 8762367 (Version 1)
Quarter: 2012Q4

REPORT INFORMATION
  Report Type: 
  Country: NL (occurrence: NL)
  Receive Date: 20120829
  Receipt Date: 20120829
  Transmission Date: 20130627
  Serious: Yes (Other)
  Sender: FDA-Public Use
  Company Number: CHPA2012NL018807

PATIENT
  Age: 44 Year
  Sex: Female
  Weight: 105 kg

DRUGS (5)
  1. TAVEGYL [Suspect]
     Indication: LYME DISEASE
     Dosage: 1 mg, UNK
     Route: 048
     Dates: start: 20120731, end: 20120805
  2. CEFTRIAXONE [Suspect]
     Indication: LYME DISEASE
     Dosage: 2000 mg daily
     Dates: start: 20120731
  3. OMEPRAZOLE [Suspect]
     Dosage: 20 mg, QD
     Route: 048
     Dates: start: 20120731
  4. PARACETAMOL [Suspect]
     Dosage: 500 mg, PRN
     Dates: start: 20120731
  5. IBUPROFEN [Suspect]
     Dosage: 400 mg, PRN
     Dates: start: 20120731

REACTIONS (7)
  - Face oedema [Recovered/Resolved]
  - Palpitations [Recovered/Resolved]
  - Fluid retention [Recovered/Resolved]
  - Heart rate increased [Recovered/Resolved]
  - Dyspnoea [Not Recovered/Not Resolved]
  - Headache [Not Recovered/Not Resolved]
  - Off label use [Unknown]
